FAERS Safety Report 16986988 (Version 1)
Quarter: 2019Q4

REPORT INFORMATION
  Report Type: Spontaneous
  Country: ES (occurrence: ES)
  Receive Date: 20191102
  Receipt Date: 20191102
  Transmission Date: 20200122
  Serious: Yes (Hospitalization, Other)
  Sender: FDA-Public Use
  Company Number: ES-BIOMARINAP-ES-2019-126143

PATIENT

DRUGS (3)
  1. ALDURAZYME [Suspect]
     Active Substance: LARONIDASE
     Indication: MUCOPOLYSACCHARIDOSIS I
     Dosage: 100 INTERNATIONAL UNIT/KILOGRAM, QW
     Route: 065
     Dates: start: 20160930
  2. IBUPROFEN. [Concomitant]
     Active Substance: IBUPROFEN
     Indication: PRODUCT USED FOR UNKNOWN INDICATION
  3. ALDURAZYME [Suspect]
     Active Substance: LARONIDASE
     Dosage: 100 INTERNATIONAL UNIT/KILOGRAM, QW
     Route: 041
     Dates: start: 20161018

REACTIONS (10)
  - Eosinophil count increased [Unknown]
  - Anaphylactic reaction [Recovered/Resolved]
  - Administration site extravasation [Recovered/Resolved]
  - Urticaria [Unknown]
  - Oedema peripheral [Unknown]
  - Erythema [Recovered/Resolved]
  - Skin induration [Unknown]
  - Localised oedema [Recovered/Resolved]
  - Allergy to arthropod bite [Unknown]
  - Urticaria [Recovered/Resolved]

NARRATIVE: CASE EVENT DATE: 20180918
